FAERS Safety Report 6501755-2 (Version None)
Quarter: 2009Q4

REPORT INFORMATION
  Report Type: 
  Country: None (occurrence: None)
  Receive Date: 20091216
  Receipt Date: 20091206
  Transmission Date: 20100525
  Serious: Yes (Other)
  Sender: FDA-Public Use
  Company Number: IL-PFIZER INC-2009302999

PATIENT
  Age: 86 Year
  Sex: Female

DRUGS (2)
  1. LYRICA [Suspect]
     Indication: SCIATICA
     Dosage: 75 MG, 1X/DAY
     Dates: start: 20090101
  2. VITAMIN D [Suspect]
     Dosage: UNK

REACTIONS (2)
  - HYPERVITAMINOSIS [None]
  - PSYCHOTIC DISORDER [None]
